FAERS Safety Report 9129986 (Version 2)
Quarter: 2013Q1

REPORT INFORMATION
  Report Type: Spontaneous
  Country: RO (occurrence: RO)
  Receive Date: 20130228
  Receipt Date: 20130313
  Transmission Date: 20140127
  Serious: Yes (Hospitalization)
  Sender: FDA-Public Use
  Company Number: RO-009507513-1302ROM011400

PATIENT
  Age: 74 Year
  Sex: Female

DRUGS (6)
  1. SIMVASTATIN [Suspect]
     Indication: HYPERCHOLESTEROLAEMIA
     Dosage: 20 MG, QD
     Route: 048
     Dates: start: 20100902, end: 20100930
  2. FLUCONAZOLE [Suspect]
     Indication: CANDIDA INFECTION
     Dosage: 2 DF, QW
     Route: 048
     Dates: start: 20100902, end: 20100909
  3. INDAPAMIDE [Concomitant]
     Indication: HYPERTENSION
     Dosage: 1.5 MG, QD
  4. TRIMETAZIDINE [Concomitant]
     Indication: PROPHYLAXIS
     Dosage: 70 MG, QD
     Dates: start: 20100902
  5. LOSARTAN POTASSIUM [Concomitant]
     Indication: HYPERTENSION
     Dosage: 20 MG, QD
  6. MEBEVERINE HYDROCHLORIDE [Concomitant]
     Indication: IRRITABLE BOWEL SYNDROME
     Dosage: 400 MG, QD
     Dates: start: 20100902

REACTIONS (4)
  - Myalgia [Recovered/Resolved]
  - Asthenia [Recovering/Resolving]
  - Spinal pain [Recovering/Resolving]
  - Abdominal pain [Recovering/Resolving]
